FAERS Safety Report 23064529 (Version 1)
Quarter: 2023Q4

REPORT INFORMATION
  Report Type: Spontaneous
  Country: SK (occurrence: SK)
  Receive Date: 20231013
  Receipt Date: 20231013
  Transmission Date: 20240109
  Serious: Yes (Death, Hospitalization, Other)
  Sender: FDA-Public Use
  Company Number: SK-GLAXOSMITHKLINE-SK2023GSK138405

PATIENT

DRUGS (2)
  1. FLUTICASONE PROPIONATE [Suspect]
     Active Substance: FLUTICASONE PROPIONATE
     Indication: Asthma
     Dosage: UNK
     Route: 055
  2. SALMETEROL [Concomitant]
     Active Substance: SALMETEROL
     Indication: Asthma
     Dosage: UNK
     Route: 055

REACTIONS (24)
  - COVID-19 [Fatal]
  - Dyspnoea [Fatal]
  - Pyrexia [Fatal]
  - Asthenia [Fatal]
  - Peripheral embolism [Fatal]
  - Pulmonary fibrosis [Fatal]
  - Thrombosis [Fatal]
  - Respiratory failure [Fatal]
  - Shock [Fatal]
  - Diffuse alveolar damage [Fatal]
  - Capillaritis [Fatal]
  - Lymphocytic infiltration [Fatal]
  - Hyperplasia [Fatal]
  - Hypertrophy [Fatal]
  - Necrosis [Fatal]
  - Aspergillus infection [Fatal]
  - COVID-19 pneumonia [Fatal]
  - Cytomegalovirus infection [Fatal]
  - Nephrosclerosis [Fatal]
  - Lipomatosis [Fatal]
  - Interstitial lung disease [Fatal]
  - Pancreatitis chronic [Fatal]
  - Pulmonary cavitation [Fatal]
  - Bronchiectasis [Fatal]

NARRATIVE: CASE EVENT DATE: 20210101
